FAERS Safety Report 5562494-8 (Version None)
Quarter: 2007Q4

REPORT INFORMATION
  Report Type: 
  Country: None (occurrence: None)
  Receive Date: 20071216
  Receipt Date: 20071211
  Transmission Date: 20080405
  Serious: Yes (Disabling)
  Sender: FDA-Public Use
  Company Number: US-ALLERGAN-0713621US

PATIENT
  Sex: Male

DRUGS (2)
  1. RESTASIS [Suspect]
     Indication: DRY EYE
     Dosage: UNK, UNK
     Route: 047
  2. REFRESH CELLUVISC SOLUTION [Suspect]
     Indication: DRY EYE
     Route: 047

REACTIONS (1)
  - DEAFNESS [None]
